FAERS Safety Report 25293987 (Version 2)
Quarter: 2025Q3

REPORT INFORMATION
  Report Type: Spontaneous
  Country: US (occurrence: US)
  Receive Date: 20250510
  Receipt Date: 20250725
  Transmission Date: 20251020
  Serious: No
  Sender: SANOFI AVENTIS
  Company Number: US-SANOFI-02504182

PATIENT
  Age: 70 Year
  Sex: Male

DRUGS (1)
  1. CEREZYME [Suspect]
     Active Substance: IMIGLUCERASE
     Indication: Gaucher^s disease type I
     Dosage: 3200 MG, QOW
     Route: 065
     Dates: start: 2004

REACTIONS (3)
  - Condition aggravated [Unknown]
  - Migraine [Unknown]
  - Hypertension [Unknown]

NARRATIVE: CASE EVENT DATE: 20250401
